FAERS Safety Report 8025258-1 (Version None)
Quarter: 2012Q1

REPORT INFORMATION
  Report Type: 
  Country: None (occurrence: None)
  Receive Date: 20120105
  Receipt Date: 20120103
  Transmission Date: 20120608
  Serious: No
  Sender: FDA-Public Use
  Company Number: US-PFIZER INC-2012001519

PATIENT
  Sex: Male
  Weight: 74.83 kg

DRUGS (6)
  1. OMEPRAZOLE [Concomitant]
     Dosage: UNK
  2. LIPITOR [Suspect]
     Dosage: 80 MG, 1X/DAY
     Route: 048
     Dates: start: 20060101
  3. PROSCAR [Concomitant]
     Dosage: UNK
  4. CARDIZEM [Concomitant]
     Indication: HYPERTENSION
     Dosage: UNK
  5. LIPITOR [Suspect]
     Indication: BLOOD CHOLESTEROL INCREASED
     Dosage: 20 MG, 1X/DAY
     Route: 048
     Dates: start: 20010101, end: 20060101
  6. HYTRIN [Concomitant]
     Dosage: UNK

REACTIONS (2)
  - SERUM FERRITIN DECREASED [None]
  - IRON DEFICIENCY ANAEMIA [None]
